FAERS Safety Report 26143152 (Version 1)
Quarter: 2025Q4

REPORT INFORMATION
  Report Type: Spontaneous
  Country: CN (occurrence: CN)
  Receive Date: 20251211
  Receipt Date: 20251211
  Transmission Date: 20260118
  Serious: Yes (Other)
  Sender: ACCORD
  Company Number: None

PATIENT
  Age: 38 Year
  Sex: Female
  Weight: 66 kg

DRUGS (3)
  1. TRASTUZUMAB [Suspect]
     Active Substance: TRASTUZUMAB
     Indication: Breast cancer
     Dosage: 600 MILLIGRAM, QD IV DRIP
     Route: 042
     Dates: start: 20251018, end: 20251018
  2. VINORELBINE TARTRATE [Suspect]
     Active Substance: VINORELBINE TARTRATE
     Indication: Product used for unknown indication
     Dosage: 90 MILLIGRAM, QD
     Route: 048
     Dates: start: 20251018, end: 20251018
  3. PYROTINIB [Suspect]
     Active Substance: PYROTINIB
     Indication: Product used for unknown indication
     Dosage: 320 MILLIGRAM, QD, ON DAY 1 (D1) AND D8
     Route: 048
     Dates: start: 20251018, end: 20251018

REACTIONS (1)
  - Drug-induced liver injury [Unknown]

NARRATIVE: CASE EVENT DATE: 20251108
